FAERS Safety Report 18537172 (Version 1)
Quarter: 2020Q4

REPORT INFORMATION
  Report Type: Spontaneous
  Country: CN (occurrence: CN)
  Receive Date: 20201124
  Receipt Date: 20201124
  Transmission Date: 20210114
  Serious: Yes (Other)
  Sender: FDA-Public Use
  Company Number: CN-PFIZER INC-2020457394

PATIENT
  Age: 58 Year
  Sex: Female
  Weight: 60 kg

DRUGS (2)
  1. PIPERACILLIN/TAZOBACTAM [Suspect]
     Active Substance: PIPERACILLIN SODIUM\TAZOBACTAM SODIUM
     Indication: ANTI-INFECTIVE THERAPY
     Dosage: 4.5 G, 3X/DAY (FOR EVERY 8 HOURS)
     Route: 041
     Dates: start: 20201017, end: 20201024
  2. CEFTRIAXONE SODIUM. [Concomitant]
     Active Substance: CEFTRIAXONE SODIUM
     Indication: ANTI-INFECTIVE THERAPY
     Dosage: 2 G, 1X/DAY
     Route: 041
     Dates: start: 202010, end: 202010

REACTIONS (4)
  - Acinetobacter infection [Unknown]
  - Therapeutic product effect incomplete [Unknown]
  - Pyrexia [Unknown]
  - Pathogen resistance [Unknown]

NARRATIVE: CASE EVENT DATE: 202010
